FAERS Safety Report 24845789 (Version 2)
Quarter: 2025Q1

REPORT INFORMATION
  Report Type: Spontaneous
  Country: US (occurrence: US)
  Receive Date: 20250115
  Receipt Date: 20250226
  Transmission Date: 20250408
  Serious: No
  Sender: BLUEPRINT MEDICINES
  Company Number: US-Blueprint Medicines Corporation-2025-AER-00069

PATIENT
  Age: 55 Year
  Sex: Female

DRUGS (2)
  1. AYVAKIT [Suspect]
     Active Substance: AVAPRITINIB
     Indication: Systemic mastocytosis
     Dosage: 25MG DAILY
     Route: 065
     Dates: start: 20241230
  2. AYVAKIT [Suspect]
     Active Substance: AVAPRITINIB
     Dosage: 25MG DAILY
     Route: 065
     Dates: start: 20241230

REACTIONS (4)
  - Fatigue [Unknown]
  - Hair colour changes [Unknown]
  - Eye swelling [Unknown]
  - Peripheral swelling [Unknown]
